FAERS Safety Report 7531324-7 (Version None)
Quarter: 2011Q2

REPORT INFORMATION
  Report Type: 
  Country: None (occurrence: None)
  Receive Date: 20110608
  Receipt Date: 20110601
  Transmission Date: 20111010
  Serious: Yes (Other)
  Sender: FDA-Public Use
  Company Number: IN-SANOFI-AVENTIS-2011SA034713

PATIENT

DRUGS (1)
  1. FUROSEMIDE [Suspect]
     Route: 065

REACTIONS (2)
  - PSEUDO-BARTTER SYNDROME [None]
  - RENAL TUBULAR ACIDOSIS [None]
